FAERS Safety Report 9402417 (Version 1)
Quarter: 2013Q3

REPORT INFORMATION
  Report Type: Spontaneous
  Country: US (occurrence: None)
  Receive Date: 20130712
  Receipt Date: 20130712
  Transmission Date: 20140515
  Serious: No
  Sender: FDA-Public Use
  Company Number: None

PATIENT
  Age: 44 Year
  Sex: Female
  Weight: 88.64 kg

DRUGS (17)
  1. TECFIDERA [Suspect]
     Indication: MULTIPLE SCLEROSIS
     Dosage: 240 MG BID PO
     Route: 048
     Dates: start: 20130620
  2. ASPIRIN   ?? [Concomitant]
  3. VITAMIN B12 [Concomitant]
  4. VIT D [Concomitant]
  5. IBUPROFEN [Concomitant]
  6. EXCEDRIN EXTRA STRENGTH [Concomitant]
  7. TRAZODONE [Concomitant]
  8. SINGULAIR [Concomitant]
  9. OMEPRAZOLE [Concomitant]
  10. MECLIZINE [Concomitant]
  11. DILTIAZEM [Concomitant]
  12. VESICARE [Concomitant]
  13. GABAPENTIN [Concomitant]
  14. ATORVASTATIN [Concomitant]
  15. FLUOXETINE [Concomitant]
  16. VIT C [Concomitant]
  17. FISH OIL [Concomitant]

REACTIONS (2)
  - Flushing [None]
  - Feeling hot [None]
